FAERS Safety Report 25657852 (Version 1)
Quarter: 2025Q3

REPORT INFORMATION
  Report Type: Spontaneous
  Country: US (occurrence: US)
  Receive Date: 20250808
  Receipt Date: 20250808
  Transmission Date: 20251021
  Serious: Yes (Life-Threatening, Other)
  Sender: ROCHE
  Company Number: US-ROCHE-10000352710

PATIENT
  Age: 27 Year
  Sex: Male

DRUGS (4)
  1. AVASTIN [Suspect]
     Active Substance: BEVACIZUMAB
     Indication: Neurofibromatosis
     Route: 065
  2. LOSARTAN [Concomitant]
     Active Substance: LOSARTAN
  3. DILTIAZEM [Concomitant]
     Active Substance: DILTIAZEM
  4. EMPAGLIFLOZIN [Concomitant]
     Active Substance: EMPAGLIFLOZIN

REACTIONS (7)
  - Arteriosclerosis [Unknown]
  - Endothelial dysfunction [Unknown]
  - Proteinuria [Unknown]
  - Hyperlipidaemia [Unknown]
  - Hypertension [Unknown]
  - Acute myocardial infarction [Unknown]
  - Ventricular fibrillation [Unknown]
